FAERS Safety Report 8488386-2 (Version None)
Quarter: 2012Q2

REPORT INFORMATION
  Report Type: 
  Country: None (occurrence: None)
  Receive Date: 20120626
  Receipt Date: 20120611
  Transmission Date: 20120825
  Serious: Yes (Hospitalization, Other)
  Sender: FDA-Public Use
  Company Number: 2012MA007199

PATIENT
  Age: 8 Day
  Sex: Female

DRUGS (3)
  1. SURFACTANT [Concomitant]
  2. HYDROCORTISONE 1% OINTMENT [Suspect]
     Indication: BRONCHOPULMONARY DYSPLASIA
     Dosage: 5 MG; BID; IV,
  3. HYDROCORTISONE 1% OINTMENT [Suspect]
     Indication: RESPIRATORY DISTRESS
     Dosage: 5 MG; BID; IV,

REACTIONS (1)
  - HYPERTROPHIC CARDIOMYOPATHY [None]
